FAERS Safety Report 18945943 (Version 2)
Quarter: 2021Q3

REPORT INFORMATION
  Report Type: Spontaneous
  Country: US (occurrence: US)
  Receive Date: 20210226
  Receipt Date: 20210817
  Transmission Date: 20211014
  Serious: No
  Sender: FDA-Public Use
  Company Number: US-AIMMUNE THERAPEUTICS, INC.-2020AIMT00398

PATIENT

DRUGS (5)
  1. PALFORZIA [Suspect]
     Active Substance: PEANUT
     Dosage: 15 MG, 1X/DAY
     Route: 048
     Dates: start: 20201030, end: 20201110
  2. PALFORZIA [Suspect]
     Active Substance: PEANUT
     Dosage: 25 MG, 1X/DAY
     Route: 048
     Dates: start: 20201209, end: 20201222
  3. PALFORZIA [Suspect]
     Active Substance: PEANUT
     Dosage: 20 MG, 1X/DAY
     Route: 048
     Dates: start: 20201111, end: 20201208
  4. PALFORZIA [Suspect]
     Active Substance: PEANUT
     Indication: FOOD ALLERGY
     Dosage: 20 MG, 1X/DAY
     Route: 048
     Dates: start: 20201027, end: 20201029
  5. PALFORZIA [Suspect]
     Active Substance: PEANUT
     Dosage: 30 MG, 1X/DAY
     Route: 048
     Dates: start: 20201223

REACTIONS (3)
  - Abdominal discomfort [Recovered/Resolved]
  - Eczema [Recovered/Resolved]
  - Abdominal pain upper [Recovered/Resolved]

NARRATIVE: CASE EVENT DATE: 20201028
